FAERS Safety Report 19086138 (Version 1)
Quarter: 2021Q2

REPORT INFORMATION
  Report Type: Spontaneous
  Country: US (occurrence: US)
  Receive Date: 20210402
  Receipt Date: 20210402
  Transmission Date: 20210717
  Serious: No
  Sender: FDA-Public Use
  Company Number: US-ALLERGAN-2010262US

PATIENT
  Sex: Male

DRUGS (1)
  1. OXYTROL [Suspect]
     Active Substance: OXYBUTYNIN
     Indication: HYPERTONIC BLADDER
     Dosage: 1 PATCH, QD
     Route: 062

REACTIONS (3)
  - Product packaging difficult to open [Unknown]
  - Product use issue [Unknown]
  - Off label use [Unknown]
